FAERS Safety Report 6424871-2 (Version None)
Quarter: 2009Q4

REPORT INFORMATION
  Report Type: 
  Country: None (occurrence: None)
  Receive Date: 20091103
  Receipt Date: 20091103
  Transmission Date: 20100525
  Serious: Yes (Hospitalization, Other)
  Sender: FDA-Public Use
  Company Number: US-PFIZER INC-2005170358

PATIENT
  Sex: Male
  Weight: 71.655 kg

DRUGS (5)
  1. LIPITOR [Suspect]
     Indication: CORONARY ARTERY OCCLUSION
     Dosage: 10 MG, 1X/DAY
     Route: 048
     Dates: start: 19930101
  2. LIPITOR [Suspect]
     Indication: BLOOD CHOLESTEROL INCREASED
  3. QUINAPRIL [Concomitant]
     Indication: HYPERTENSION
     Dosage: 40 MG, 1X/DAY
     Route: 065
  4. ATENOLOL [Concomitant]
     Dosage: UNK
     Route: 065
  5. AMLODIPINE [Concomitant]
     Dosage: UNK

REACTIONS (7)
  - ASTHENIA [None]
  - CORONARY ARTERY OCCLUSION [None]
  - FAECAL INCONTINENCE [None]
  - MYALGIA [None]
  - PAIN [None]
  - UNEVALUABLE EVENT [None]
  - URINARY INCONTINENCE [None]
